FAERS Safety Report 13210717 (Version 1)
Quarter: 2017Q1

REPORT INFORMATION
  Report Type: Spontaneous
  Country: US (occurrence: US)
  Receive Date: 20170210
  Receipt Date: 20170210
  Transmission Date: 20170428
  Serious: No
  Sender: FDA-Public Use
  Company Number: US-WEST-WARD PHARMACEUTICALS CORP.-US-H14001-16-02990

PATIENT
  Sex: Female
  Weight: 61.22 kg

DRUGS (1)
  1. FLUTICASONE PROPIONATE 50 MCG METERED SPRAY [Suspect]
     Active Substance: FLUTICASONE PROPIONATE
     Indication: SEASONAL ALLERGY
     Route: 045
     Dates: start: 201610, end: 201610

REACTIONS (1)
  - Drug ineffective [Recovered/Resolved]
